FAERS Safety Report 8032650-8 (Version None)
Quarter: 2012Q1

REPORT INFORMATION
  Report Type: 
  Country: None (occurrence: None)
  Receive Date: 20120110
  Receipt Date: 20110808
  Transmission Date: 20120608
  Serious: No
  Sender: FDA-Public Use
  Company Number: US-COVIDIEN/TYCO HEALTHCARE/MALLINCKRODT-T201101568

PATIENT
  Sex: Female

DRUGS (3)
  1. OPTIRAY 160 [Suspect]
     Indication: COMPUTERISED TOMOGRAM
     Dosage: 100 ML, SINGLE
     Route: 042
     Dates: start: 20110808, end: 20110808
  2. MEDROL [Concomitant]
     Indication: PREMEDICATION
     Dosage: 32 MG, SINGLE
     Dates: start: 20110807, end: 20110807
  3. MEDROL [Concomitant]
     Dosage: 32 MG, SINGLE
     Dates: start: 20110808, end: 20110808

REACTIONS (3)
  - EYE PRURITUS [None]
  - OCULAR HYPERAEMIA [None]
  - URTICARIA [None]
